FAERS Safety Report 4421939-7 (Version None)
Quarter: 2004Q3

REPORT INFORMATION
  Report Type: 
  Country: None (occurrence: None)
  Receive Date: 20040806
  Receipt Date: 20040729
  Transmission Date: 20050211
  Serious: Yes (Other)
  Sender: FDA-Public Use
  Company Number: 2004225570US

PATIENT
  Age: 55 Year
  Sex: Male
  Weight: 59.4 kg

DRUGS (3)
  1. CAMPTOSAR [Suspect]
     Indication: SMALL CELL LUNG CANCER STAGE UNSPECIFIED
     Dosage: 100 MG/M2, Q21 DAYS, CYCLIC; IV
     Route: 042
     Dates: start: 20040714
  2. CAMPARATOR-DOCETAXEL (DOCETAXEL) INJECTION [Suspect]
     Indication: SMALL CELL LUNG CANCER STAGE UNSPECIFIED
     Dosage: 65 MG/M2, Q21 DAYS, CYCLIC; IV
     Route: 030
     Dates: start: 20040714
  3. CARBOPLATIN [Suspect]
     Indication: SMALL CELL LUNG CANCER STAGE UNSPECIFIED
     Dosage: 565 MG, Q21 DAYS, CYCLIC; IV
     Route: 042

REACTIONS (7)
  - ABDOMINAL PAIN UPPER [None]
  - ANOREXIA [None]
  - DEHYDRATION [None]
  - DIARRHOEA [None]
  - MARKEDLY REDUCED DIETARY INTAKE [None]
  - NAUSEA [None]
  - WEIGHT DECREASED [None]
